FAERS Safety Report 5580784-X (Version None)
Quarter: 2008Q1

REPORT INFORMATION
  Report Type: 
  Country: None (occurrence: None)
  Receive Date: 20080103
  Receipt Date: 20071227
  Transmission Date: 20080703
  Serious: Yes (Other)
  Sender: FDA-Public Use
  Company Number: US-ROXANE LABORATORIES, INC-2007-BP-23484RO

PATIENT
  Sex: Female
  Weight: 45 kg

DRUGS (1)
  1. OXCARBAZEPINE TABLETS 150 MG, 300 MG, AND 600 MG [Suspect]
     Indication: CONVULSION
     Dosage: 150 MG AM + PM; 75 MG AT NOON
     Route: 048
     Dates: start: 20071025, end: 20071026

REACTIONS (3)
  - DRUG INEFFECTIVE [None]
  - GRAND MAL CONVULSION [None]
  - TREMOR [None]
